FAERS Safety Report 10261565 (Version 2)
Quarter: 2014Q2

REPORT INFORMATION
  Report Type: Spontaneous
  Country: GB (occurrence: GB)
  Receive Date: 20140626
  Receipt Date: 20140626
  Transmission Date: 20141212
  Serious: Yes (Life-Threatening, Hospitalization, Disabling, Other)
  Sender: FDA-Public Use
  Company Number: PHHY2014GB064715

PATIENT
  Age: 41 Year
  Sex: Male
  Weight: 119 kg

DRUGS (9)
  1. DICLOFENAC [Suspect]
     Indication: BACK PAIN
     Dosage: 50 MG, UNK
     Route: 048
     Dates: start: 2004
  2. SUMATRIPTAN [Suspect]
     Indication: MIGRAINE
     Route: 065
     Dates: start: 200409, end: 20140507
  3. ANTIHYPERTENSIVES [Concomitant]
  4. BENDROFLUMETHIAZIDE [Concomitant]
     Indication: HYPERTENSION
     Dosage: 2.5 MG PER DAY
     Route: 048
     Dates: start: 201310
  5. CLENIL MODULITE [Concomitant]
     Indication: ASTHMA
     Dosage: 200 UG, BID
     Route: 055
     Dates: start: 2012
  6. CETIRIZINE [Concomitant]
     Indication: SEASONAL ALLERGY
     Dosage: 10 MG, PER DAY
     Route: 048
     Dates: start: 201305
  7. DOXAZOSIN [Concomitant]
     Indication: HYPERTENSION
     Dosage: 14 MG PER DAY
     Route: 048
     Dates: start: 2012
  8. OMEPRAZOLE [Concomitant]
     Indication: GASTROOESOPHAGEAL REFLUX DISEASE
     Dosage: 10 MG, PER DAY
     Route: 048
     Dates: start: 201305
  9. SALBUTAMOL [Concomitant]
     Route: 055
     Dates: start: 201306

REACTIONS (3)
  - Haemorrhagic stroke [Recovering/Resolving]
  - Cerebral haemorrhage [Recovering/Resolving]
  - Aphasia [Recovering/Resolving]
